FAERS Safety Report 9197527 (Version 1)
Quarter: 2013Q1

REPORT INFORMATION
  Report Type: Report from Study
  Country: US (occurrence: US)
  Receive Date: 20130328
  Receipt Date: 20130328
  Transmission Date: 20140127
  Serious: No
  Sender: FDA-Public Use
  Company Number: US-VERTEX PHARMACEUTICALS INC.-2013-004164

PATIENT
  Sex: Female

DRUGS (6)
  1. VX-950 (TELAPREVIR) [Suspect]
     Indication: HEPATITIS C
     Dosage: 750 MG, TID
     Route: 048
  2. PEGASYS [Suspect]
     Indication: HEPATITIS C
  3. SUBOXONE [Concomitant]
  4. MULTIVITAMINS [Concomitant]
  5. VITAMIN B 12 [Concomitant]
     Dosage: 1000 ?G, UNK
  6. FISH OIL [Concomitant]

REACTIONS (1)
  - Fatigue [Unknown]
